FAERS Safety Report 10168242 (Version 2)
Quarter: 2014Q2

REPORT INFORMATION
  Report Type: Spontaneous
  Country: US (occurrence: US)
  Receive Date: 20140512
  Receipt Date: 20140513
  Transmission Date: 20141212
  Serious: No
  Sender: FDA-Public Use
  Company Number: US-ASTRAZENECA-2013SE82479

PATIENT
  Age: 77 Year
  Sex: Female
  Weight: 116 kg

DRUGS (2)
  1. FASLODEX [Suspect]
     Indication: BREAST CANCER METASTATIC
     Route: 030
     Dates: start: 200710
  2. INSULIN [Concomitant]
     Indication: DIABETES MELLITUS
     Dosage: 8 UNITS TWO TIMES A DAY

REACTIONS (2)
  - Injection site hypertrophy [Not Recovered/Not Resolved]
  - Off label use [Unknown]
